FAERS Safety Report 14947647 (Version 1)
Quarter: 2018Q2

REPORT INFORMATION
  Report Type: Report from Study
  Country: None (occurrence: IT)
  Receive Date: 20180529
  Receipt Date: 20180529
  Transmission Date: 20180711
  Serious: Yes (Death)
  Sender: FDA-Public Use
  Company Number: IT-ABBVIE-18K-083-2370027-00

PATIENT
  Age: 80 Year
  Sex: Male

DRUGS (1)
  1. DUODOPA [Suspect]
     Active Substance: CARBIDOPA\LEVODOPA
     Indication: PARKINSON^S DISEASE
     Dosage: MD: 13??CR: 3??ED: 3,2
     Route: 050
     Dates: start: 20160622, end: 20180526

REACTIONS (1)
  - Death [Fatal]

NARRATIVE: CASE EVENT DATE: 20180526
